FAERS Safety Report 12823064 (Version 1)
Quarter: 2016Q4

REPORT INFORMATION
  Report Type: Spontaneous
  Country: DE (occurrence: DE)
  Receive Date: 20161007
  Receipt Date: 20161007
  Transmission Date: 20170207
  Serious: Yes (Other)
  Sender: FDA-Public Use
  Company Number: PHHY2016DE134650

PATIENT
  Age: 76 Year
  Sex: Female
  Weight: 70 kg

DRUGS (1)
  1. DIOVAN [Suspect]
     Active Substance: VALSARTAN
     Indication: PRODUCT USED FOR UNKNOWN INDICATION
     Dosage: 160 MG, UNK
     Route: 065

REACTIONS (12)
  - Pain [Recovering/Resolving]
  - Glucose tolerance impaired [Recovering/Resolving]
  - Cardiac failure [Recovering/Resolving]
  - Cerebrovascular disorder [Recovering/Resolving]
  - General physical condition abnormal [Recovering/Resolving]
  - Hypertension [Recovering/Resolving]
  - Polyneuropathy [Recovering/Resolving]
  - Coronary artery disease [Recovering/Resolving]
  - Transient ischaemic attack [Recovering/Resolving]
  - Bradycardia [Recovering/Resolving]
  - Dyspnoea [Recovering/Resolving]
  - Haemoglobin decreased [Unknown]

NARRATIVE: CASE EVENT DATE: 20160620
